FAERS Safety Report 6932221-8 (Version None)
Quarter: 2010Q3

REPORT INFORMATION
  Report Type: 
  Country: None (occurrence: None)
  Receive Date: 20100819
  Receipt Date: 20100810
  Transmission Date: 20110219
  Serious: Yes (Other)
  Sender: FDA-Public Use
  Company Number: BR-ROCHE-688145

PATIENT
  Sex: Male
  Weight: 80 kg

DRUGS (2)
  1. ROACUTAN [Suspect]
     Indication: ACNE
     Route: 048
     Dates: start: 20080811, end: 20081105
  2. ROACUTAN [Suspect]
     Dosage: FREQUENCY: 2 CAPSULES PER DAY AT NIGHT
     Route: 048
     Dates: start: 20100501

REACTIONS (8)
  - ACNE [None]
  - ACNE FULMINANS [None]
  - BLOOD CHOLESTEROL INCREASED [None]
  - DRUG INEFFECTIVE [None]
  - SCAR [None]
  - SKIN DISORDER [None]
  - SKIN NECROSIS [None]
  - SKIN ULCER [None]
